FAERS Safety Report 20821828 (Version 2)
Quarter: 2022Q2

REPORT INFORMATION
  Report Type: Spontaneous
  Country: US (occurrence: US)
  Receive Date: 20220512
  Receipt Date: 20220610
  Transmission Date: 20220721
  Serious: No
  Sender: FDA-Public Use
  Company Number: US-MYLANLABS-2022M1033419

PATIENT

DRUGS (1)
  1. ESTRADIOL TRANSDERMAL SYSTEM [Suspect]
     Active Substance: ESTRADIOL
     Indication: Product used for unknown indication
     Dosage: 0.5 MILLIGRAM, QD (ONCE WEEKLY)
     Route: 062

REACTIONS (6)
  - Application site laceration [Unknown]
  - Application site pruritus [Unknown]
  - Application site erosion [Unknown]
  - Application site rash [Unknown]
  - Product quality issue [Unknown]
  - Product adhesion issue [Unknown]
